APPROVED DRUG PRODUCT: DILTIAZEM HYDROCHLORIDE
Active Ingredient: DILTIAZEM HYDROCHLORIDE
Strength: 30MG
Dosage Form/Route: TABLET;ORAL
Application: A074084 | Product #001
Applicant: TEVA PHARMACEUTICALS USA INC
Approved: Feb 25, 1994 | RLD: No | RS: No | Type: DISCN